FAERS Safety Report 7808792-6 (Version None)
Quarter: 2011Q4

REPORT INFORMATION
  Report Type: 
  Country: None (occurrence: None)
  Receive Date: 20111012
  Receipt Date: 20110928
  Transmission Date: 20120403
  Serious: Yes (Other)
  Sender: FDA-Public Use
  Company Number: PHHY2011BR86498

PATIENT
  Age: 50 Year
  Sex: Male

DRUGS (7)
  1. BUPROPION HCL [Concomitant]
     Indication: ANXIETY
  2. METFORMIN HYDROCHLORIDE [Concomitant]
     Dosage: 1 G, UNK
  3. EXFORGE [Suspect]
     Dosage: 160/5 MG
  4. BUPROPION HCL [Concomitant]
     Indication: SMOKING CESSATION THERAPY
     Dosage: 150 MG, BID
  5. SIMVASTATIN [Concomitant]
     Dosage: 20 MG, QD
  6. EXFORGE [Suspect]
     Dosage: 320/ 10 MG
  7. ACETYLSALICYLIC ACID [Concomitant]
     Dosage: UNK UKN, UNK

REACTIONS (5)
  - BLOOD PRESSURE INADEQUATELY CONTROLLED [None]
  - HIGH DENSITY LIPOPROTEIN DECREASED [None]
  - ANXIETY [None]
  - BLOOD GLUCOSE INCREASED [None]
  - BLOOD URIC ACID INCREASED [None]
